FAERS Safety Report 8974791 (Version 1)
Quarter: 2012Q4

REPORT INFORMATION
  Report Type: Spontaneous
  Country: US (occurrence: None)
  Receive Date: 20121218
  Receipt Date: 20121218
  Transmission Date: 20130627
  Serious: Yes (Other)
  Sender: FDA-Public Use
  Company Number: None

PATIENT
  Age: 9 Year
  Sex: Female
  Weight: 25.2 kg

DRUGS (2)
  1. TRILEPTAL [Suspect]
     Indication: COMPLEX PARTIAL EPILEPSY
     Dosage: 6ml PO BID
     Route: 048
  2. TRILEPTAL [Suspect]
     Indication: HIPPOCAMPAL SCLEROSIS
     Dosage: 6ml PO BID
     Route: 048

REACTIONS (1)
  - Unevaluable event [None]
